FAERS Safety Report 8533799-3 (Version None)
Quarter: 2012Q3

REPORT INFORMATION
  Report Type: 
  Country: None (occurrence: None)
  Receive Date: 20120724
  Receipt Date: 20120711
  Transmission Date: 20120928
  Serious: Yes (Hospitalization)
  Sender: FDA-Public Use
  Company Number: DE-ROCHE-1046721

PATIENT
  Sex: Female
  Weight: 55 kg

DRUGS (6)
  1. XELODA [Suspect]
     Indication: BREAST CANCER
     Dosage: LAST DOSE PRIOR TO SAE: 03/JAN/2012
     Route: 048
     Dates: start: 20110926
  2. AMITRIPTYLINE HCL [Concomitant]
     Dates: start: 19750101
  3. AVASTIN [Suspect]
     Indication: BREAST CANCER
     Dosage: LAST DOSE PRIOR TO SAE: 17/JAN/2012
     Route: 042
     Dates: start: 20110926, end: 20120117
  4. VINORELBINE TARTRATE [Suspect]
     Indication: BREAST CANCER
     Dosage: LAST DOSE PRIOR TO SAE : 24/JAN/2012
     Dates: start: 20110926, end: 20120124
  5. MORPHINE [Concomitant]
     Dates: start: 20080601
  6. PANTOPRAZOLE [Concomitant]
     Dates: start: 20111025

REACTIONS (4)
  - ENTEROCOLITIS HAEMORRHAGIC [None]
  - CYSTITIS [None]
  - HYDRONEPHROSIS [None]
  - COLITIS ULCERATIVE [None]
